FAERS Safety Report 20712238 (Version 3)
Quarter: 2022Q3

REPORT INFORMATION
  Report Type: Spontaneous
  Country: CA (occurrence: CA)
  Receive Date: 20220414
  Receipt Date: 20220729
  Transmission Date: 20221027
  Serious: Yes (Other)
  Sender: FDA-Public Use
  Company Number: CA-BAXTER-2022BAX007836

PATIENT
  Age: 9 Year
  Sex: Male

DRUGS (30)
  1. CYCLOPHOSPHAMIDE [Suspect]
     Active Substance: CYCLOPHOSPHAMIDE
     Indication: Acute myeloid leukaemia
     Dosage: DOSAGE FORM: NOT SPECIFIED.
     Route: 065
  2. BUSULFAN [Suspect]
     Active Substance: BUSULFAN
     Indication: Acute myeloid leukaemia
     Dosage: DOSAGE FORM: NOT SPECIFIED.
     Route: 065
  3. CYTARABINE [Suspect]
     Active Substance: CYTARABINE
     Indication: Acute myeloid leukaemia
     Dosage: 1000 MG/M2, PRN, DOSAGE FORM: POWDER FOR SOLUTION INTRATHECAL.
     Route: 065
  4. CYTARABINE [Suspect]
     Active Substance: CYTARABINE
     Dosage: 2000 MG/M2, QD, DOSAGE FORM: POWDER FOR SOLUTION, INTRATHECAL.
     Route: 065
  5. CYTARABINE [Suspect]
     Active Substance: CYTARABINE
     Dosage: 2000 MG/M2, QD, DOSAGE FORM: POWDER FOR SOLUTION INJECTION.
     Route: 037
  6. CYTARABINE [Suspect]
     Active Substance: CYTARABINE
     Dosage: 1000 MG/M2, PRN, DOSAGE FORM: NOT REPORTED.
     Route: 065
  7. CYTARABINE [Suspect]
     Active Substance: CYTARABINE
     Dosage: 100 MG/M2, PRN, DOSAGE FORM: NOT SPECIFIED.
     Route: 065
  8. CYTARABINE [Suspect]
     Active Substance: CYTARABINE
     Dosage: 100.0 MG/M2
     Route: 065
  9. CYTARABINE [Suspect]
     Active Substance: CYTARABINE
     Dosage: DOSAGE FORM: NOT SPECIFIED, 2000.0 MG/M2
     Route: 065
  10. CYTARABINE [Suspect]
     Active Substance: CYTARABINE
     Dosage: DOSAGE FORM: SOLUTION INTRATHECAL, 1000.0 MG/M2
     Route: 037
  11. DAUNORUBICIN [Suspect]
     Active Substance: DAUNORUBICIN
     Indication: Acute myeloid leukaemia
     Dosage: DOSAGE FORM: NOT REPORTED.
     Route: 065
  12. DAUNORUBICIN [Suspect]
     Active Substance: DAUNORUBICIN
     Dosage: DOSAGE FORM: NOT REPORTED.
     Route: 065
  13. ETOPOSIDE [Suspect]
     Active Substance: ETOPOSIDE
     Indication: Acute myeloid leukaemia
     Dosage: 100 MG/M2, PRN, DOSAGE FORM: NOT SPECIFIED.
     Route: 065
  14. ETOPOSIDE [Suspect]
     Active Substance: ETOPOSIDE
     Dosage: 100 MG/M2, PRN, DOSAGE FORM: NOT SPECIFIED
     Route: 065
  15. ETOPOSIDE [Suspect]
     Active Substance: ETOPOSIDE
     Dosage: DOSAGE FORM: NOT SPECIFIED,
     Route: 065
  16. FILGRASTIM [Suspect]
     Active Substance: FILGRASTIM
     Indication: Acute myeloid leukaemia
     Dosage: DOSAGE FORM: NOT REPORTED
     Route: 065
  17. FLUDARABINE [Suspect]
     Active Substance: FLUDARABINE PHOSPHATE
     Indication: Acute myeloid leukaemia
     Dosage: 30 MG/M2, QD, DOSAGE FORM: NOT SPECIFIED
     Route: 065
  18. SORAFENIB [Suspect]
     Active Substance: SORAFENIB
     Indication: Acute myeloid leukaemia
     Dosage: DOSAGE FORM: NOT REPORTED.
     Route: 065
  19. SORAFENIB [Suspect]
     Active Substance: SORAFENIB
     Dosage: 200 MG/M2, QD, DOSAGE FORM: NOT REPORTED.
     Route: 065
  20. SORAFENIB [Suspect]
     Active Substance: SORAFENIB
     Dosage: DOSAGE FORM: NOT REPORTED.
     Route: 065
  21. THYMOGLOBULIN [Suspect]
     Active Substance: LAPINE T-LYMPHOCYTE IMMUNE GLOBULIN
     Indication: Acute myeloid leukaemia
     Dosage: DOSAGE FORM: POWDER FOR SOLUTION INTRAVENOUS.
     Route: 042
  22. THYMOGLOBULIN [Suspect]
     Active Substance: LAPINE T-LYMPHOCYTE IMMUNE GLOBULIN
     Dosage: DOSAGE FORM: POWDER FOR SOLUTION INTRAVENOUS.
     Route: 065
  23. NEXAVAR [Suspect]
     Active Substance: SORAFENIB
     Indication: Product used for unknown indication
     Dosage: 200.0 MG/M2
     Route: 065
  24. NEXAVAR [Suspect]
     Active Substance: SORAFENIB
     Dosage: UNK
     Route: 065
  25. RYDAPT [Suspect]
     Active Substance: MIDOSTAURIN
     Indication: Acute myeloid leukaemia
     Dosage: 30.0 MG/M2, CAPSULE, SOFT
     Route: 048
  26. RYDAPT [Suspect]
     Active Substance: MIDOSTAURIN
     Dosage: 15.0 MG/M2, CAPSULE, SOFT
     Route: 048
  27. RYDAPT [Suspect]
     Active Substance: MIDOSTAURIN
     Dosage: 15.0 MILLIGRAM
     Route: 048
  28. RYDAPT [Suspect]
     Active Substance: MIDOSTAURIN
     Dosage: 15.0 MILLIGRAM
     Route: 048
  29. RYDAPT [Suspect]
     Active Substance: MIDOSTAURIN
     Dosage: 30.0 MILLIGRAM
     Route: 048
  30. DAUNORUBICIN HYDROCHLORIDE [Suspect]
     Active Substance: DAUNORUBICIN HYDROCHLORIDE
     Indication: Product used for unknown indication
     Dosage: DOSAGE FORM: POWDER FOR SOLUTION INTRAVENOUS,
     Route: 065

REACTIONS (7)
  - Acute myeloid leukaemia recurrent [Unknown]
  - Drug intolerance [Unknown]
  - Lymphadenopathy [Unknown]
  - Skin toxicity [Unknown]
  - Myelosuppression [Unknown]
  - Pancytopenia [Unknown]
  - Bone marrow failure [Unknown]
